FAERS Safety Report 24109447 (Version 1)
Quarter: 2024Q3

REPORT INFORMATION
  Report Type: Spontaneous
  Country: US (occurrence: US)
  Receive Date: 20240718
  Receipt Date: 20240718
  Transmission Date: 20241016
  Serious: No
  Sender: ELI LILLY AND CO
  Company Number: US-ELI_LILLY_AND_COMPANY-US202407010271

PATIENT
  Age: 60 Year
  Sex: Female

DRUGS (1)
  1. VERZENIO [Suspect]
     Active Substance: ABEMACICLIB
     Indication: Breast cancer female
     Dosage: UNK UNK, BID
     Route: 048
     Dates: start: 20240509

REACTIONS (6)
  - Renal impairment [Unknown]
  - Constipation [Unknown]
  - Red blood cell count decreased [Unknown]
  - Diarrhoea [Unknown]
  - White blood cell count decreased [Unknown]
  - Platelet count decreased [Unknown]
